FAERS Safety Report 5228454-1 (Version None)
Quarter: 2007Q1

REPORT INFORMATION
  Report Type: 
  Country: None (occurrence: None)
  Receive Date: 20070205
  Receipt Date: 20070126
  Transmission Date: 20070707
  Serious: Yes (Hospitalization)
  Sender: FDA-Public Use
  Company Number: DE-JNJFOC-20070106711

PATIENT
  Age: 64 Year
  Sex: Male

DRUGS (10)
  1. LEVOFLOXACIN [Suspect]
     Indication: PROPHYLAXIS
     Route: 048
     Dates: start: 20060512, end: 20060516
  2. DOCETAXEL [Suspect]
     Indication: BRONCHIAL CARCINOMA
     Route: 042
  3. CARBOPLATIN [Suspect]
     Indication: BRONCHIAL CARCINOMA
     Route: 042
  4. AMARYL [Concomitant]
     Indication: DIABETES MELLITUS
     Route: 048
  5. BISOPROLOL FUMARATE [Concomitant]
     Indication: HYPERTENSION
     Route: 048
  6. VALSARTAN [Concomitant]
     Indication: HYPERTENSION
     Route: 048
  7. PANTOPRAZOL [Concomitant]
     Indication: GASTRITIS
     Route: 048
  8. METHIZOL [Concomitant]
     Indication: HYPERTHYROIDISM
     Route: 048
  9. LEVEMIR [Concomitant]
     Indication: DIABETES MELLITUS
     Route: 058
  10. DEXAMETHASONE [Concomitant]
     Indication: PREMEDICATION
     Route: 065

REACTIONS (1)
  - DIABETIC GANGRENE [None]
